FAERS Safety Report 9257373 (Version 1)
Quarter: 2013Q2

REPORT INFORMATION
  Report Type: Spontaneous
  Country: PT (occurrence: PT)
  Receive Date: 20130426
  Receipt Date: 20130426
  Transmission Date: 20140414
  Serious: Yes (Other)
  Sender: FDA-Public Use
  Company Number: PT-009507513-1304PRT014577

PATIENT
  Sex: Female
  Weight: 90 kg

DRUGS (1)
  1. IMPLANON NXT [Suspect]
     Indication: CONTRACEPTION
     Route: 058
     Dates: end: 20130308

REACTIONS (2)
  - Dyspnoea [Recovered/Resolved]
  - Angioedema [Recovered/Resolved]
